FAERS Safety Report 10469652 (Version 1)
Quarter: 2014Q3

REPORT INFORMATION
  Report Type: Spontaneous
  Country: US (occurrence: None)
  Receive Date: 20140922
  Receipt Date: 20140922
  Transmission Date: 20150326
  Serious: No
  Sender: FDA-Public Use
  Company Number: None

PATIENT
  Age: 35 Year
  Sex: Female
  Weight: 72.58 kg

DRUGS (1)
  1. TOPIRAMATE. [Suspect]
     Active Substance: TOPIRAMATE
     Indication: MIGRAINE
     Dosage: 1 PILL EVERY NIGHT, AT BEDTIME, TAKEN BY MOUTH
     Route: 048
     Dates: start: 20140827

REACTIONS (8)
  - Nasopharyngitis [None]
  - Migraine [None]
  - Visual impairment [None]
  - Fatigue [None]
  - Paraesthesia [None]
  - Aggression [None]
  - Abdominal pain [None]
  - Irritability [None]

NARRATIVE: CASE EVENT DATE: 20140919
